FAERS Safety Report 25737330 (Version 1)
Quarter: 2025Q3

REPORT INFORMATION
  Report Type: Spontaneous
  Country: EU (occurrence: EU)
  Receive Date: 20250828
  Receipt Date: 20250828
  Transmission Date: 20251020
  Serious: Yes (Other)
  Sender: DR REDDYS
  Company Number: None

PATIENT
  Age: 23 Year
  Sex: Male

DRUGS (3)
  1. PREGABALIN [Suspect]
     Active Substance: PREGABALIN
     Indication: Product used for unknown indication
     Route: 048
  2. TENAMFETAMINE [Suspect]
     Active Substance: TENAMFETAMINE
     Indication: Product used for unknown indication
     Route: 048
  3. MIDOMAFETAMINE [Suspect]
     Active Substance: MIDOMAFETAMINE
     Indication: Product used for unknown indication
     Route: 048

REACTIONS (4)
  - Substance abuse [Unknown]
  - Schizophrenia [Unknown]
  - Aggression [Unknown]
  - Restlessness [Unknown]
